FAERS Safety Report 14611384 (Version 1)
Quarter: 2018Q1

REPORT INFORMATION
  Report Type: Spontaneous
  Country: IT (occurrence: IT)
  Receive Date: 20180308
  Receipt Date: 20180308
  Transmission Date: 20180509
  Serious: Yes (Other)
  Sender: FDA-Public Use
  Company Number: IT-ABBVIE-18P-083-2276342-00

PATIENT
  Age: 50 Year
  Sex: Male

DRUGS (1)
  1. DEPAKIN CHRONO [Suspect]
     Active Substance: VALPROIC ACID
     Indication: SCHIZOAFFECTIVE DISORDER
     Dosage: EXTENDED RELEASE TABLET
     Route: 048

REACTIONS (2)
  - Off label use [Unknown]
  - Electrocardiogram QT prolonged [Recovering/Resolving]
